FAERS Safety Report 4820805-2 (Version None)
Quarter: 2005Q4

REPORT INFORMATION
  Report Type: 
  Country: None (occurrence: None)
  Receive Date: 20051104
  Receipt Date: 20051031
  Transmission Date: 20060501
  Serious: Yes (Hospitalization)
  Sender: FDA-Public Use
  Company Number: US-JNJFOC-20051100206

PATIENT
  Age: 9 Year
  Sex: Male
  Weight: 38.59 kg

DRUGS (2)
  1. TYLENOL (CAPLET) [Suspect]
     Route: 048
  2. TYLENOL (CAPLET) [Suspect]
     Indication: DRUG USE FOR UNKNOWN INDICATION
     Dosage: UNKNOWN, ^}8 HR {= 24 HR^
     Route: 048

REACTIONS (4)
  - ABDOMINAL PAIN [None]
  - INCORRECT DRUG DOSAGE FORM ADMINISTERED [None]
  - NAUSEA [None]
  - VOMITING [None]
